FAERS Safety Report 10265117 (Version 1)
Quarter: 2014Q2

REPORT INFORMATION
  Report Type: Spontaneous
  Country: US (occurrence: None)
  Receive Date: 20140625
  Receipt Date: 20140625
  Transmission Date: 20141212
  Serious: No
  Sender: FDA-Public Use
  Company Number: None

PATIENT
  Age: 68 Year
  Sex: Male
  Weight: 103.8 kg

DRUGS (1)
  1. LEUPROLIDE ACETATE [Suspect]
     Dosage: PT RECEIVED 2 INJECTIONS OF LEUPROLIDE 22.5 MG SC ON SEPT 11, 2013 AND JAN 23 2014.

REACTIONS (1)
  - Anaemia [None]
